FAERS Safety Report 19861591 (Version 2)
Quarter: 2022Q1

REPORT INFORMATION
  Report Type: Spontaneous
  Country: US (occurrence: US)
  Receive Date: 20210920
  Receipt Date: 20220307
  Transmission Date: 20220423
  Serious: No
  Sender: FDA-Public Use
  Company Number: US-PFIZER INC-2021465254

PATIENT
  Age: 60 Year
  Sex: Female

DRUGS (1)
  1. XELJANZ [Suspect]
     Active Substance: TOFACITINIB CITRATE
     Indication: Rheumatoid arthritis
     Dosage: 5 MG, 2X/DAY
     Route: 048
     Dates: start: 202003

REACTIONS (7)
  - Product dose omission in error [Unknown]
  - Inappropriate schedule of product administration [Unknown]
  - Calcinosis [Unknown]
  - Pain [Unknown]
  - Muscular weakness [Unknown]
  - Dysstasia [Unknown]
  - Back pain [Unknown]
